FAERS Safety Report 6267615-X (Version None)
Quarter: 2009Q3

REPORT INFORMATION
  Report Type: 
  Country: None (occurrence: None)
  Receive Date: 20090710
  Receipt Date: 20090624
  Transmission Date: 20100115
  Serious: Yes (Hospitalization)
  Sender: FDA-Public Use
  Company Number: 1000007234

PATIENT
  Age: 87 Year
  Sex: Female

DRUGS (8)
  1. CITALOPRAM HYDROBROMIDE [Suspect]
     Dosage: 10 MG (10 MG, 1 IN 1 D),ORAL
     Route: 048
     Dates: start: 20090225, end: 20090301
  2. CITALOPRAM HYDROBROMIDE [Suspect]
     Dosage: 20 MG (20 MG, 1 IN 1 D),  ORAL
     Route: 048
     Dates: start: 20090302, end: 20090307
  3. REMERGIL [Suspect]
     Dosage: 15 MG (15 MG, 1 IN 1 D), ORAL
     Route: 048
     Dates: start: 20090220, end: 20090222
  4. REMERGIL [Suspect]
     Dosage: 15 MG (15 MG, 1 IN 1 D), ORAL
     Route: 048
     Dates: start: 20090223
  5. DELTX PLUS [Suspect]
     Dosage: 5MG/25 MG ( 1 IN 1 D), ORAL
     Route: 048
     Dates: start: 20090224, end: 20090306
  6. DELTX PLUS [Suspect]
     Dosage: 1 IN 1 D),ORAL
     Route: 048
  7. XIMOVAN [Concomitant]
  8. PERENTEROL (CAPSULES) [Concomitant]

REACTIONS (12)
  - ATRIAL FIBRILLATION [None]
  - BLOOD CALCIUM DECREASED [None]
  - BLOOD CHLORIDE DECREASED [None]
  - CONVULSION [None]
  - DISORIENTATION [None]
  - FALL [None]
  - GENERAL PHYSICAL HEALTH DETERIORATION [None]
  - HYPOKALAEMIA [None]
  - HYPONATRAEMIA [None]
  - NORMOCHROMIC NORMOCYTIC ANAEMIA [None]
  - URINARY TRACT INFECTION [None]
  - VERTEBRAL INJURY [None]
